FAERS Safety Report 10758921 (Version 2)
Quarter: 2015Q1

REPORT INFORMATION
  Report Type: Report from Study
  Country: US (occurrence: US)
  Receive Date: 20150203
  Receipt Date: 20150311
  Transmission Date: 20150721
  Serious: Yes (Life-Threatening)
  Sender: FDA-Public Use
  Company Number: US-009507513-1502USA000407

PATIENT

DRUGS (3)
  1. OMBITASVIR [Suspect]
     Active Substance: OMBITASVIR
     Indication: CHRONIC HEPATITIS C
     Dosage: 25 MG, QD
  2. ABT-450 [Suspect]
     Active Substance: VERUPREVIR
     Indication: CHRONIC HEPATITIS C
     Dosage: 200/100 MG ONCE DAILY
  3. REBETOL [Suspect]
     Active Substance: RIBAVIRIN
     Indication: CHRONIC HEPATITIS C
     Dosage: DOSING WAS WEIGHT-BASED (1000MG OR 1200MG TOTAL DAILY DIVIDED INTO 2 DAILY DOSES)
     Route: 048

REACTIONS (1)
  - Blood uric acid increased [Unknown]
